FAERS Safety Report 10270118 (Version 5)
Quarter: 2015Q2

REPORT INFORMATION
  Report Type: Spontaneous
  Country: US (occurrence: US)
  Receive Date: 20140701
  Receipt Date: 20150612
  Transmission Date: 20150821
  Serious: Yes (Hospitalization)
  Sender: FDA-Public Use
  Company Number: US-BAYER-2014-095759

PATIENT
  Age: 23 Year
  Sex: Female
  Weight: 72.56 kg

DRUGS (3)
  1. CELEBREX [Concomitant]
     Active Substance: CELECOXIB
     Dosage: 200 MG, UNK
  2. ATIVAN [Concomitant]
     Active Substance: LORAZEPAM
     Dosage: 0.5 MG, UNK
  3. MIRENA [Suspect]
     Active Substance: LEVONORGESTREL
     Indication: CONTRACEPTION
     Dosage: 20 MCG/24HR, CONT
     Route: 015
     Dates: start: 20080429, end: 20100618

REACTIONS (13)
  - Device dislocation [None]
  - Ovarian cyst [None]
  - Ectopic pregnancy with contraceptive device [None]
  - Post procedural discomfort [None]
  - Device issue [None]
  - Abdominal pain [None]
  - Scar [None]
  - Ruptured ectopic pregnancy [None]
  - Adhesion [None]
  - Medical device pain [None]
  - Drug ineffective [None]
  - Injury [None]
  - Scar pain [None]

NARRATIVE: CASE EVENT DATE: 20080429
